FAERS Safety Report 6910207-7 (Version None)
Quarter: 2010Q3

REPORT INFORMATION
  Report Type: 
  Country: None (occurrence: None)
  Receive Date: 20100806
  Receipt Date: 20100805
  Transmission Date: 20110219
  Serious: Yes (Death, Other)
  Sender: FDA-Public Use
  Company Number: HQWYE286115DEC06

PATIENT
  Age: 58 Year
  Sex: Male

DRUGS (2)
  1. EFFEXOR [Suspect]
     Indication: ANXIETY
     Dosage: UNKNOWN
     Dates: end: 20030703
  2. EFFEXOR [Suspect]
     Indication: INSOMNIA

REACTIONS (4)
  - COMPLETED SUICIDE [None]
  - FEELING ABNORMAL [None]
  - HOMICIDE [None]
  - SOCIAL AVOIDANT BEHAVIOUR [None]
